FAERS Safety Report 5142716-8 (Version None)
Quarter: 2006Q4

REPORT INFORMATION
  Report Type: 
  Country: None (occurrence: None)
  Receive Date: 20061027
  Receipt Date: 20061010
  Transmission Date: 20070319
  Serious: Yes (Hospitalization, Disabling)
  Sender: FDA-Public Use
  Company Number: US200610001738

PATIENT
  Age: 57 Year
  Sex: Female

DRUGS (1)
  1. ZYPREXA [Suspect]
     Dates: start: 19970101

REACTIONS (5)
  - COMA [None]
  - DYSPHAGIA [None]
  - EYE DISORDER [None]
  - INJURY [None]
  - MEMORY IMPAIRMENT [None]
